FAERS Safety Report 21298928 (Version 4)
Quarter: 2023Q1

REPORT INFORMATION
  Report Type: Spontaneous
  Country: US (occurrence: US)
  Receive Date: 20220906
  Receipt Date: 20230228
  Transmission Date: 20230417
  Serious: Yes (Hospitalization)
  Sender: FDA-Public Use
  Company Number: US-PFIZER INC-PV202200056534

PATIENT
  Age: 71 Year
  Sex: Female

DRUGS (1)
  1. XELJANZ XR [Suspect]
     Active Substance: TOFACITINIB CITRATE
     Indication: Rheumatoid arthritis
     Dosage: 11 MG, DAILY
     Route: 048
     Dates: start: 20220629

REACTIONS (14)
  - Anaemia [Unknown]
  - Blood sodium decreased [Unknown]
  - Vomiting [Unknown]
  - Memory impairment [Unknown]
  - Diarrhoea [Unknown]
  - Fall [Unknown]
  - Head injury [Unknown]
  - Feeling abnormal [Unknown]
  - Condition aggravated [Unknown]
  - Depression [Unknown]
  - Discouragement [Unknown]
  - Hypoaesthesia [Unknown]
  - Neuralgia [Unknown]
  - Loss of personal independence in daily activities [Recovering/Resolving]

NARRATIVE: CASE EVENT DATE: 20230202
